FAERS Safety Report 4823466-1 (Version None)
Quarter: 2005Q4

REPORT INFORMATION
  Report Type: 
  Country: None (occurrence: None)
  Receive Date: 20051107
  Receipt Date: 20051104
  Transmission Date: 20060501
  Serious: Yes (Death)
  Sender: FDA-Public Use
  Company Number: 2005S1001377

PATIENT
  Age: 54 Year
  Sex: Male
  Weight: 77.1115 kg

DRUGS (8)
  1. CLOZAPINE [Suspect]
     Indication: SCHIZOPHRENIA
     Dosage: 75 MG;BID; PO
     Route: 048
  2. CLOZAPINE [Suspect]
     Indication: SCHIZOPHRENIA
     Dosage: 200 MG; BID, PO
     Route: 048
  3. DIPHENHYDRAMINE HCL [Concomitant]
  4. FERROUS SULFATE TAB [Concomitant]
  5. LORAZEPAM [Concomitant]
  6. ESCITALOPRAM OXALATE [Concomitant]
  7. SERTRALINE HCL [Concomitant]
  8. GEMFIBROZIL [Concomitant]

REACTIONS (1)
  - DEATH [None]
